FAERS Safety Report 9433930 (Version 1)
Quarter: 2013Q3

REPORT INFORMATION
  Report Type: Spontaneous
  Country: TR (occurrence: TR)
  Receive Date: 20130801
  Receipt Date: 20130801
  Transmission Date: 20140515
  Serious: Yes (Death, Other)
  Sender: FDA-Public Use
  Company Number: TR-AMGEN-TURSP2013052969

PATIENT
  Age: 61 Year
  Sex: Male

DRUGS (6)
  1. NEUPOGEN [Suspect]
     Indication: FEBRILE NEUTROPENIA
     Dosage: 48 MU/DAY
     Route: 065
  2. RITUXIMAB [Concomitant]
     Indication: NON-HODGKIN^S LYMPHOMA STAGE II
     Dosage: UNK
  3. CYCLOPHOSPHAMIDE [Concomitant]
     Indication: NON-HODGKIN^S LYMPHOMA STAGE II
     Dosage: UNK
  4. DOXORUBICIN [Concomitant]
     Indication: NON-HODGKIN^S LYMPHOMA STAGE II
     Dosage: UNK
  5. ONCOVIN [Concomitant]
     Indication: NON-HODGKIN^S LYMPHOMA STAGE II
     Dosage: UNK
  6. PREDNISOLONE [Concomitant]
     Indication: NON-HODGKIN^S LYMPHOMA STAGE II
     Dosage: UNK

REACTIONS (4)
  - Tumour lysis syndrome [Fatal]
  - Overdose [Fatal]
  - Septic shock [Fatal]
  - Pneumonia [Unknown]
